FAERS Safety Report 16846247 (Version 4)
Quarter: 2019Q4

REPORT INFORMATION
  Report Type: Spontaneous
  Country: US (occurrence: US)
  Receive Date: 20190924
  Receipt Date: 20191028
  Transmission Date: 20200122
  Serious: No
  Sender: FDA-Public Use
  Company Number: US-SA-2019SA261471

PATIENT
  Age: 88 Year
  Sex: Female
  Weight: 118 kg

DRUGS (1)
  1. LANTUS SOLOSTAR [Suspect]
     Active Substance: INSULIN GLARGINE
     Indication: TYPE 2 DIABETES MELLITUS
     Dosage: 8-10 DAILY
     Route: 065

REACTIONS (3)
  - Needle issue [Unknown]
  - Blood glucose increased [Unknown]
  - Device operational issue [Unknown]
